FAERS Safety Report 6119119-2 (Version None)
Quarter: 2009Q1

REPORT INFORMATION
  Report Type: 
  Country: None (occurrence: None)
  Receive Date: 20090316
  Receipt Date: 20090311
  Transmission Date: 20090719
  Serious: Yes (Death, Hospitalization)
  Sender: FDA-Public Use
  Company Number: GB-CELGENEUS-167-C5013-06090755

PATIENT
  Sex: Female

DRUGS (1)
  1. CC-5013 [Suspect]
     Route: 048
     Dates: start: 20060814, end: 20060920

REACTIONS (2)
  - MYALGIA [None]
  - PNEUMONIA ASPIRATION [None]
